FAERS Safety Report 5712810-9 (Version None)
Quarter: 2008Q2

REPORT INFORMATION
  Report Type: 
  Country: None (occurrence: None)
  Receive Date: 20080422
  Receipt Date: 20080414
  Transmission Date: 20081010
  Serious: Yes (Other)
  Sender: FDA-Public Use
  Company Number: US-JNJFOC-20080404316

PATIENT
  Age: 63 Year
  Sex: Female
  Weight: 98.43 kg

DRUGS (1)
  1. EXTRA STRENGTH TYLENOL [Suspect]
     Indication: INSOMNIA
     Route: 048

REACTIONS (3)
  - BACK PAIN [None]
  - CHEST PAIN [None]
  - DRUG INEFFECTIVE [None]
